FAERS Safety Report 5920183-1 (Version None)
Quarter: 2008Q4

REPORT INFORMATION
  Report Type: 
  Country: None (occurrence: None)
  Receive Date: 20081015
  Receipt Date: 20081015
  Transmission Date: 20090506
  Serious: No
  Sender: FDA-Public Use
  Company Number: None

PATIENT
  Age: 79 Year
  Sex: Male
  Weight: 72 kg

DRUGS (1)
  1. ERTAPENEM [Suspect]
     Indication: OSTEOMYELITIS
     Dates: start: 20080825, end: 20080909

REACTIONS (4)
  - CONFUSIONAL STATE [None]
  - HALLUCINATION [None]
  - MENTAL STATUS CHANGES [None]
  - MIOSIS [None]
